FAERS Safety Report 5694952-X (Version None)
Quarter: 2008Q2

REPORT INFORMATION
  Report Type: 
  Country: None (occurrence: None)
  Receive Date: 20080404
  Receipt Date: 20080325
  Transmission Date: 20081010
  Serious: Yes (Other)
  Sender: FDA-Public Use
  Company Number: JP-PFIZER INC-2008027517

PATIENT
  Age: 47 Year
  Sex: Female

DRUGS (5)
  1. GABAPEN [Suspect]
     Indication: EPILEPSY
     Dosage: DAILY DOSE:400MG
     Route: 048
     Dates: start: 20080129, end: 20080222
  2. CARBAMAZEPINE [Suspect]
     Indication: EPILEPSY
     Dosage: DAILY DOSE:600MG
     Route: 048
  3. VALPROATE SODIUM [Suspect]
     Indication: EPILEPSY
     Dosage: DAILY DOSE:1000MG
     Route: 048
  4. PHENOBARBITAL TAB [Concomitant]
     Indication: EPILEPSY
     Dosage: DAILY DOSE:90MG
     Route: 048
  5. CLONAZEPAM [Concomitant]
     Indication: EPILEPSY
     Dosage: DAILY DOSE:3MG
     Route: 048

REACTIONS (3)
  - CONTUSION [None]
  - EPILEPSY [None]
  - FALL [None]
